FAERS Safety Report 24239677 (Version 1)
Quarter: 2024Q3

REPORT INFORMATION
  Report Type: Spontaneous
  Country: US (occurrence: US)
  Receive Date: 20240822
  Receipt Date: 20240822
  Transmission Date: 20241016
  Serious: No
  Sender: AVADEL CNS PHARMA
  Company Number: US-AVADEL CNS PHARMACEUTICALS, LLC-2024AVA00804

PATIENT
  Sex: Female

DRUGS (15)
  1. LUMRYZ [Suspect]
     Active Substance: SODIUM OXYBATE
     Indication: Narcolepsy
     Dosage: 7.5 G, ONCE NIGHTLY
     Route: 048
     Dates: start: 20240321, end: 2024
  2. LUMRYZ [Suspect]
     Active Substance: SODIUM OXYBATE
     Indication: Cataplexy
  3. LAMOTRIGINE [Concomitant]
     Active Substance: LAMOTRIGINE
     Dosage: 100 MG, 2X/DAY
  4. QULIPTA [Concomitant]
     Active Substance: ATOGEPANT
     Dosage: 60 MG, 1X/DAY
  5. AMBIEN CR [Concomitant]
     Active Substance: ZOLPIDEM TARTRATE
     Dosage: 6.25 MG, ONE AT BEDTIME
  6. JARDIANCE [Concomitant]
     Active Substance: EMPAGLIFLOZIN
     Dosage: 25 MG, 1X/DAY
  7. FOCALIN [Concomitant]
     Active Substance: DEXMETHYLPHENIDATE HYDROCHLORIDE
     Dosage: 10 MG, 2X/DAY
  8. VITAMIN D3 [Concomitant]
     Active Substance: CHOLECALCIFEROL
     Dosage: 125 ?G, 1X/DAY
  9. LUNESTA [Concomitant]
     Active Substance: ESZOPICLONE
     Dosage: 3 MG, ONE AT BEDTIME
  10. CETIRIZINE [Concomitant]
     Active Substance: CETIRIZINE HYDROCHLORIDE
     Dosage: 10 MG, 1X/DAY
  11. ONDANSETRON HYDROCHLORIDE [Concomitant]
     Active Substance: ONDANSETRON HYDROCHLORIDE
     Dosage: 8 MG, AS NEEDED
  12. MONTELUKAST [Concomitant]
     Active Substance: MONTELUKAST SODIUM
     Dosage: 10 MG, EVERY NIGHT AT BEDTIME
  13. ATORVASTATIN [Concomitant]
     Active Substance: ATORVASTATIN
     Dosage: 10 MG, 1X/DAY
  14. CALCIUM\MELATONIN\PYRIDOXINE HYDROCHLORIDE [Concomitant]
     Active Substance: CALCIUM\MELATONIN\PYRIDOXINE HYDROCHLORIDE
     Dosage: 10 MG, EVERY NIGHT AT BEDTIME
  15. PANTOPRAZOLE SODIUM [Concomitant]
     Active Substance: PANTOPRAZOLE SODIUM
     Dosage: 40 MG, 2X/DAY

REACTIONS (1)
  - Amnesia [Not Recovered/Not Resolved]

NARRATIVE: CASE EVENT DATE: 20240101
